FAERS Safety Report 7734116-9 (Version None)
Quarter: 2011Q3

REPORT INFORMATION
  Report Type: 
  Country: None (occurrence: None)
  Receive Date: 20110907
  Receipt Date: 20110901
  Transmission Date: 20111222
  Serious: Yes (Hospitalization)
  Sender: FDA-Public Use
  Company Number: JP-ROCHE-719847

PATIENT
  Sex: Female

DRUGS (38)
  1. CAPECITABINE [Suspect]
     Route: 048
     Dates: start: 20110225, end: 20110308
  2. CAPECITABINE [Suspect]
     Route: 048
     Dates: start: 20110316, end: 20110316
  3. CAPECITABINE [Suspect]
     Route: 048
     Dates: start: 20110427, end: 20110506
  4. GRANISETRON HYDROCHLORIDE [Suspect]
     Indication: PREMEDICATION
     Dosage: DRUG NAME:KYTRIL(GRANISETRON)
     Route: 048
     Dates: start: 20100616, end: 20100711
  5. FAMOTIDINE [Suspect]
     Indication: PREMEDICATION
     Route: 041
     Dates: start: 20100616, end: 20110202
  6. GRANISETRON HYDROCHLORIDE [Suspect]
     Indication: PROPHYLAXIS OF NAUSEA AND VOMITING
     Dosage: DRUG NAME: KYTRIL 3MG BAG(GRANISETRON)
     Route: 041
     Dates: start: 20100616, end: 20110202
  7. CAPECITABINE [Suspect]
     Indication: BREAST CANCER METASTATIC
     Route: 048
     Dates: start: 20110223, end: 20110224
  8. CAPECITABINE [Suspect]
     Route: 048
     Dates: start: 20110420, end: 20110420
  9. CAPECITABINE [Suspect]
     Route: 048
     Dates: start: 20110622, end: 20110706
  10. XELODA [Concomitant]
     Route: 048
     Dates: start: 20110316, end: 20110316
  11. XELODA [Concomitant]
     Route: 048
     Dates: start: 20110318, end: 20110330
  12. XELODA [Concomitant]
     Route: 048
     Dates: start: 20110406, end: 20110419
  13. CLARITIN [Concomitant]
     Dosage: DOSAGE IS UNCERTAIN
     Route: 048
     Dates: start: 20110223, end: 20110426
  14. XELODA [Concomitant]
     Route: 048
     Dates: start: 20110427, end: 20110506
  15. CAPECITABINE [Suspect]
     Route: 048
     Dates: start: 20110317, end: 20110317
  16. XELODA [Concomitant]
     Route: 048
     Dates: start: 20110223, end: 20110224
  17. XELODA [Concomitant]
     Route: 048
     Dates: start: 20110225, end: 20110308
  18. CAPECITABINE [Suspect]
     Route: 048
     Dates: start: 20110419, end: 20110419
  19. CAPECITABINE [Suspect]
     Route: 048
     Dates: start: 20110507, end: 20110601
  20. GRANISETRON HYDROCHLORIDE [Suspect]
     Route: 048
     Dates: start: 20100617, end: 20110207
  21. TAXOTERE [Suspect]
     Indication: BREAST CANCER RECURRENT
     Dosage: DRUG NAME:TAXOTERE(DOCETAXEL HYDRATE),
     Route: 041
     Dates: start: 20100616, end: 20100728
  22. XELODA [Concomitant]
     Route: 048
     Dates: start: 20110420, end: 20110420
  23. GRANISETRON HYDROCHLORIDE [Suspect]
     Route: 041
     Dates: start: 20100617, end: 20110207
  24. XELODA [Concomitant]
     Route: 048
     Dates: start: 20110622, end: 20110706
  25. CAPECITABINE [Suspect]
     Route: 048
     Dates: start: 20110406, end: 20110406
  26. TAXOTERE [Suspect]
     Route: 041
     Dates: start: 20100818, end: 20110202
  27. DECADRON [Suspect]
     Indication: PREMEDICATION
     Dosage: DRUG NAME:DECADRON(DEXAMETHASONE SODIUM PHOSPHATE)
     Route: 041
     Dates: start: 20100616, end: 20110202
  28. CHLORPHENIRAMINE MALEATE [Suspect]
     Indication: PREMEDICATION
     Dosage: DRUG NAME: POLARAMINE(CHLORPHENIRAMINE MALEATE)
     Route: 041
     Dates: start: 20100616, end: 20110202
  29. XELODA [Concomitant]
     Route: 048
     Dates: start: 20110317, end: 20110317
  30. XELODA [Concomitant]
     Route: 048
     Dates: start: 20110419, end: 20110419
  31. XELODA [Concomitant]
     Route: 048
     Dates: start: 20110507
  32. CAPECITABINE [Suspect]
     Route: 048
     Dates: start: 20110318, end: 20110330
  33. CAPECITABINE [Suspect]
     Route: 048
     Dates: start: 20110407, end: 20110407
  34. MOTILIUM [Suspect]
     Indication: PREMEDICATION
     Route: 048
     Dates: start: 20100616, end: 20110207
  35. DECADRON [Suspect]
     Route: 048
     Dates: start: 20100616, end: 20110711
  36. ZOMETA [Suspect]
     Indication: METASTASES TO BONE
     Dosage: DRUG NAME: ZOMETA(ZOLEDRONIC ACID HYDRATE)
     Route: 041
     Dates: start: 20100616, end: 20110518
  37. PYDOXAL [Suspect]
     Indication: PROPHYLAXIS
     Route: 048
     Dates: start: 20100616
  38. PATANOL [Concomitant]
     Dosage: DOSE FORM: EYE DROPS, DOSAGE IS UNCERTAIN
     Route: 047
     Dates: start: 20110316, end: 20110426

REACTIONS (12)
  - NEUTROPHIL COUNT DECREASED [None]
  - DECREASED APPETITE [None]
  - STOMATITIS [None]
  - OVERDOSE [None]
  - MALAISE [None]
  - NAUSEA [None]
  - FATIGUE [None]
  - ALOPECIA [None]
  - PALMAR-PLANTAR ERYTHRODYSAESTHESIA SYNDROME [None]
  - VOMITING [None]
  - PULMONARY ARTERY THROMBOSIS [None]
  - INJECTION SITE EXTRAVASATION [None]
